FAERS Safety Report 5803239-3 (Version None)
Quarter: 2008Q3

REPORT INFORMATION
  Report Type: 
  Country: None (occurrence: None)
  Receive Date: 20080708
  Receipt Date: 20080625
  Transmission Date: 20090109
  Serious: Yes (Hospitalization)
  Sender: FDA-Public Use
  Company Number: US-ELI_LILLY_AND_COMPANY-US200804001410

PATIENT
  Age: 74 Year
  Sex: Female
  Weight: 78.912 kg

DRUGS (7)
  1. EVISTA [Suspect]
     Indication: OSTEOPOROSIS
     Dosage: 60 MG, UNK
     Dates: end: 20071001
  2. ATENOLOL [Concomitant]
  3. AMLODIPINE [Concomitant]
  4. SIMVASTATIN [Concomitant]
  5. PULMICORT-100 [Concomitant]
  6. OMEPRAZOLE [Concomitant]
  7. ALLEGRA [Concomitant]

REACTIONS (2)
  - KNEE ARTHROPLASTY [None]
  - PULMONARY EMBOLISM [None]
